FAERS Safety Report 18435964 (Version 1)
Quarter: 2020Q4

REPORT INFORMATION
  Report Type: Spontaneous
  Country: US (occurrence: US)
  Receive Date: 20201028
  Receipt Date: 20201028
  Transmission Date: 20210114
  Serious: Yes (Hospitalization)
  Sender: FDA-Public Use
  Company Number: None

PATIENT
  Age: 73 Year
  Sex: Female
  Weight: 117 kg

DRUGS (3)
  1. OXALIPLATIN. [Suspect]
     Active Substance: OXALIPLATIN
     Dates: end: 20201006
  2. LEUCOVORIN CALCIUM. [Suspect]
     Active Substance: LEUCOVORIN CALCIUM
     Dates: end: 20201006
  3. 5-FLUOROURACIL [Suspect]
     Active Substance: FLUOROURACIL
     Dates: end: 20201008

REACTIONS (8)
  - Acute respiratory failure [None]
  - Confusional state [None]
  - Hypoxia [None]
  - Somnolence [None]
  - Encephalopathy [None]
  - Cystitis [None]
  - Urinary tract infection [None]
  - Haematuria [None]

NARRATIVE: CASE EVENT DATE: 20201007
